FAERS Safety Report 10242860 (Version 2)
Quarter: 2014Q2

REPORT INFORMATION
  Report Type: Report from Study
  Country: MX (occurrence: MX)
  Receive Date: 20140618
  Receipt Date: 20140618
  Transmission Date: 20141212
  Serious: Yes (Hospitalization)
  Sender: FDA-Public Use
  Company Number: MX-ORION CORPORATION ORION PHARMA-ENTC2010-0191

PATIENT
  Age: 74 Year
  Sex: Male

DRUGS (3)
  1. STALEVO [Suspect]
     Indication: PARKINSON^S DISEASE
     Dosage: STRENGTH: 100/25/200 MG
     Route: 048
     Dates: start: 20091121
  2. STALEVO [Suspect]
     Dosage: STRENGTH: 150/37.5/200 MG
     Route: 048
  3. CO-DIOVAN [Suspect]
     Indication: HYPERTENSION
     Route: 065
     Dates: start: 20040618

REACTIONS (4)
  - Benign prostatic hyperplasia [Recovered/Resolved]
  - Device related infection [Recovered/Resolved]
  - Speech disorder [Unknown]
  - Feeling abnormal [Unknown]
